FAERS Safety Report 10412207 (Version 1)
Quarter: 2014Q2

REPORT INFORMATION
  Report Type: Spontaneous
  Country: US (occurrence: None)
  Receive Date: 20140604
  Receipt Date: 20140604
  Transmission Date: 20141212
  Serious: Yes (Other)
  Sender: FDA-Public Use
  Company Number: 163-POMAL-14030456

PATIENT
  Age: 59 Year
  Sex: Male
  Weight: 79.4 kg

DRUGS (6)
  1. POMALYST (POMALIDOMIDE) (4 MILLIGRAM, CAPSULES) [Suspect]
     Indication: PLASMA CELL MYELOMA
     Dosage: 21 IN 28 D
     Route: 048
     Dates: start: 20130805, end: 20130809
  2. VITAMIN B12(CYANOCOBALAMIN)(UNKNOWN) [Concomitant]
  3. VITAMIN D3(COLECALCIFEROL)(UNKNOWN) [Concomitant]
  4. CALCIUM(CALCIUM) (UNKNOWN) [Concomitant]
  5. TERAZOSIN(TERAZOSIN)(UNKNOWN) [Concomitant]
  6. DEXAMETHASONE(DEXAMETHASONE)(UNKNOWN) [Concomitant]

REACTIONS (2)
  - Thrombosis [None]
  - Oedema peripheral [None]
